FAERS Safety Report 25906025 (Version 1)
Quarter: 2025Q4

REPORT INFORMATION
  Report Type: Other
  Country: EU (occurrence: EU)
  Receive Date: 20251010
  Receipt Date: 20251010
  Transmission Date: 20260118
  Serious: Yes (Hospitalization, Other)
  Sender: GLENMARK
  Company Number: None

PATIENT
  Age: 60 Year
  Sex: Male
  Weight: 88 kg

DRUGS (6)
  1. GABAPENTIN [Interacting]
     Active Substance: GABAPENTIN
     Indication: Suicide attempt
     Dosage: 27 GRAM, SINGLE, 27 GRAMOS TOMA ?NICA
     Route: 048
     Dates: start: 20250811, end: 20250811
  2. RIVOTRIL [Interacting]
     Active Substance: CLONAZEPAM
     Indication: Suicide attempt
     Dosage: 30 MILLIGRAM, SINGLE, 30 MG TOMA ?NICA
     Route: 048
     Dates: start: 20250811, end: 20250811
  3. TRAMADOL [Interacting]
     Active Substance: TRAMADOL
     Indication: Suicide attempt
     Dosage: 3 GRAM, SINGLE, 3G TOMA UNICA
     Route: 048
     Dates: start: 20250811, end: 20250811
  4. GABAPENTIN [Concomitant]
     Active Substance: GABAPENTIN
     Indication: Pain
     Dosage: 400 MILLIGRAM, QD, 300MG 1-0-0.5
     Route: 048
     Dates: start: 20180523, end: 20250811
  5. TRAMADOL [Concomitant]
     Active Substance: TRAMADOL
     Indication: Pain
     Dosage: 100 MILLIGRAM, BID, 50MG 2-0-2
     Route: 048
     Dates: start: 20180604, end: 20250811
  6. RIVOTRIL [Concomitant]
     Active Substance: CLONAZEPAM
     Indication: Drug dependence
     Dosage: 1 MILLIGRAM, BID, 0.5MG 1-0-1
     Route: 048
     Dates: start: 20180504, end: 20250811

REACTIONS (6)
  - Hallucination, visual [Recovered/Resolved]
  - Acute kidney injury [Recovered/Resolved]
  - Blood creatine phosphokinase increased [Recovered/Resolved]
  - Somnolence [Recovered/Resolved]
  - Intentional overdose [Unknown]
  - Drug interaction [Unknown]

NARRATIVE: CASE EVENT DATE: 20250811
